FAERS Safety Report 12477779 (Version 1)
Quarter: 2016Q2

REPORT INFORMATION
  Report Type: Report from Study
  Country: RO (occurrence: RO)
  Receive Date: 20160617
  Receipt Date: 20160617
  Transmission Date: 20160815
  Serious: Yes (Hospitalization, Other)
  Sender: FDA-Public Use
  Company Number: RO-ABBVIE-16P-135-1648838-00

PATIENT
  Sex: Male

DRUGS (10)
  1. ZENRA [Concomitant]
     Indication: HYPERTENSION
     Route: 048
  2. SIOFOR [Concomitant]
     Active Substance: METFORMIN HYDROCHLORIDE
     Indication: DIABETES MELLITUS
     Route: 048
  3. RIVASTIGMINE. [Concomitant]
     Active Substance: RIVASTIGMINE
     Indication: DEMENTIA
     Route: 048
  4. AMARYL [Concomitant]
     Active Substance: GLIMEPIRIDE
     Indication: DIABETES MELLITUS
     Route: 048
  5. MONONITRON [Concomitant]
     Indication: HYPERTENSION
     Route: 048
  6. TIAPRIDAL [Concomitant]
     Active Substance: TIAPRIDE HYDROCHLORIDE
     Indication: DEMENTIA
     Route: 048
  7. NEBIVOLOL. [Concomitant]
     Active Substance: NEBIVOLOL
     Indication: PRODUCT USED FOR UNKNOWN INDICATION
     Dosage: 1/4 TABL/DAY
     Route: 048
  8. PROTECARDIN [Concomitant]
     Indication: HYPERTENSION
     Route: 048
  9. DUODOPA [Suspect]
     Active Substance: CARBIDOPA\LEVODOPA
     Indication: PARKINSON^S DISEASE
     Dosage: MD 15 ML, CR 7.2 ML, ED 3.5 ML
     Route: 050
     Dates: start: 20130617
  10. STIMULOTON [Concomitant]
     Indication: DEMENTIA
     Route: 048

REACTIONS (11)
  - Cerebrovascular accident [Unknown]
  - Abnormal behaviour [Unknown]
  - Cognitive disorder [Unknown]
  - Disturbance in attention [Unknown]
  - Hallucination [Unknown]
  - Depression [Unknown]
  - Psychotic behaviour [Unknown]
  - Memory impairment [Unknown]
  - Psychotic disorder [Unknown]
  - Aggression [Unknown]
  - Frontotemporal dementia [Unknown]
